FAERS Safety Report 11031328 (Version 1)
Quarter: 2015Q2

REPORT INFORMATION
  Report Type: Spontaneous
  Country: NL (occurrence: None)
  Receive Date: 20150413
  Receipt Date: 20150413
  Transmission Date: 20150821
  Serious: Yes (Hospitalization)
  Sender: FDA-Public Use
  Company Number: 1582047

PATIENT
  Age: 55 Year
  Sex: Female

DRUGS (2)
  1. METHOREXATE [Suspect]
     Active Substance: METHOTREXATE SODIUM
     Indication: PSORIATIC ARTHROPATHY
  2. LITHIUM. [Suspect]
     Active Substance: LITHIUM
     Indication: BIPOLAR DISORDER

REACTIONS (10)
  - Epistaxis [None]
  - Sepsis [None]
  - Prostatic specific antigen increased [None]
  - Arthralgia [None]
  - Acute kidney injury [None]
  - Bone marrow failure [None]
  - Bipolar disorder [None]
  - Joint swelling [None]
  - Pneumonia klebsiella [None]
  - Nephropathy toxic [None]

NARRATIVE: CASE EVENT DATE: 201205
